FAERS Safety Report 4704654-1 (Version None)
Quarter: 2005Q2

REPORT INFORMATION
  Report Type: 
  Country: None (occurrence: None)
  Receive Date: 20050630
  Receipt Date: 20050621
  Transmission Date: 20051028
  Serious: Yes (Hospitalization, Other)
  Sender: FDA-Public Use
  Company Number: 2005081158

PATIENT
  Age: 78 Year
  Sex: Female
  Weight: 81.6475 kg

DRUGS (7)
  1. CELEBREX [Suspect]
     Indication: RHEUMATOID ARTHRITIS
     Dosage: 200 MG (200 MG, 1 IN 1 D), ORAL
     Route: 048
     Dates: end: 20050315
  2. ACETYLSALICYLIC ACID SRT [Concomitant]
  3. NORVASC [Concomitant]
  4. TENEX [Concomitant]
  5. GLUCOTROL XL [Concomitant]
  6. HYZAAR (HYDROCHLOROTHIAZIDE, LOSARAN POTASIUM) [Concomitant]
  7. LANTUS [Concomitant]

REACTIONS (4)
  - ARTHRITIS [None]
  - CONDITION AGGRAVATED [None]
  - KNEE ARTHROPLASTY [None]
  - THROMBOSIS [None]
